FAERS Safety Report 7503973-3 (Version None)
Quarter: 2011Q2

REPORT INFORMATION
  Report Type: 
  Country: None (occurrence: None)
  Receive Date: 20110525
  Receipt Date: 20110426
  Transmission Date: 20111010
  Serious: Yes (Hospitalization)
  Sender: FDA-Public Use
  Company Number: US-BAYER-2011-015282

PATIENT
  Age: 38 Year
  Sex: Female
  Weight: 71.655 kg

DRUGS (2)
  1. MIRENA [Suspect]
     Indication: CONTRACEPTION
     Dosage: 20 MCG/24HR, CONT
     Route: 015
     Dates: start: 20100816, end: 20110211
  2. MIRENA [Suspect]
     Dosage: 20 MCG/24HR, CONT
     Route: 015
     Dates: start: 20070101, end: 20090601

REACTIONS (4)
  - PROCEDURAL PAIN [None]
  - HEADACHE [None]
  - UTERINE PERFORATION [None]
  - ABDOMINAL PAIN [None]
